FAERS Safety Report 5131559-7 (Version None)
Quarter: 2006Q4

REPORT INFORMATION
  Report Type: 
  Country: None (occurrence: None)
  Receive Date: 20061016
  Receipt Date: 20061003
  Transmission Date: 20070319
  Serious: Yes (Hospitalization)
  Sender: FDA-Public Use
  Company Number: 2006122450

PATIENT
  Sex: Female

DRUGS (2)
  1. SOMAVERT [Suspect]
     Dosage: 10 MG (DAILY), ORAL
     Route: 048
  2. LANREOTIDE ACETATE (LANREOTIDE ACETATE) [Concomitant]

REACTIONS (2)
  - DIALYSIS [None]
  - RENAL FAILURE ACUTE [None]
